FAERS Safety Report 23141012 (Version 3)
Quarter: 2023Q4

REPORT INFORMATION
  Report Type: Spontaneous
  Country: SK (occurrence: SK)
  Receive Date: 20231103
  Receipt Date: 20231128
  Transmission Date: 20240110
  Serious: No
  Sender: FDA-Public Use
  Company Number: SK-ETON PHARMACEUTICALS, INC-2023ETO000215

PATIENT
  Age: 6 Month
  Sex: Male

DRUGS (3)
  1. ALKINDI SPRINKLE [Suspect]
     Active Substance: HYDROCORTISONE
     Indication: Adrenogenital syndrome
     Dosage: 0.5 MILLIGRAM
     Route: 048
     Dates: start: 20230612
  2. ALKINDI SPRINKLE [Suspect]
     Active Substance: HYDROCORTISONE
     Dosage: 1 MILLIGRAM, TID
     Route: 048
     Dates: start: 20230612
  3. HYDROCORTISONE [Concomitant]
     Active Substance: HYDROCORTISONE
     Indication: Adrenogenital syndrome
     Dosage: UNK
     Route: 048

REACTIONS (4)
  - Product use complaint [Unknown]
  - Incorrect dose administered [Unknown]
  - Wrong technique in product usage process [Unknown]
  - No adverse event [Unknown]
